FAERS Safety Report 16869177 (Version 1)
Quarter: 2019Q3

REPORT INFORMATION
  Report Type: Report from Study
  Country: DE (occurrence: DE)
  Receive Date: 20190930
  Receipt Date: 20190930
  Transmission Date: 20191005
  Serious: Yes (Hospitalization, Other)
  Sender: FDA-Public Use
  Company Number: DE-MYLANLABS-2019M1089627

PATIENT
  Age: 59 Year
  Sex: Male
  Weight: 74 kg

DRUGS (14)
  1. METHOTREXATE. [Suspect]
     Active Substance: METHOTREXATE
     Indication: PRODUCT USED FOR UNKNOWN INDICATION
     Dosage: DOSAGE FORM: UNSPECIFIED
     Route: 065
  2. USTEKINUMAB [Suspect]
     Active Substance: USTEKINUMAB
     Dosage: 45 MILLIGRAM
     Route: 058
     Dates: start: 20170802
  3. USTEKINUMAB [Suspect]
     Active Substance: USTEKINUMAB
     Dosage: 45 MILLIGRAM
     Route: 058
     Dates: start: 20151023
  4. USTEKINUMAB [Suspect]
     Active Substance: USTEKINUMAB
     Dosage: 90 MILLIGRAM
     Route: 058
     Dates: start: 20160627
  5. USTEKINUMAB [Suspect]
     Active Substance: USTEKINUMAB
     Dosage: 90 MILLIGRAM
     Route: 058
     Dates: start: 20160926
  6. USTEKINUMAB [Suspect]
     Active Substance: USTEKINUMAB
     Dosage: 45 MILLIGRAM
     Route: 058
     Dates: start: 20170623
  7. USTEKINUMAB [Suspect]
     Active Substance: USTEKINUMAB
     Dosage: 45 MILLIGRAM
     Route: 058
     Dates: start: 20180717
  8. USTEKINUMAB [Suspect]
     Active Substance: USTEKINUMAB
     Dosage: 45 MILLIGRAM
     Route: 058
     Dates: start: 20160115
  9. USTEKINUMAB [Suspect]
     Active Substance: USTEKINUMAB
     Dosage: 90 MILLIGRAM
     Route: 058
     Dates: start: 20160323
  10. USTEKINUMAB [Suspect]
     Active Substance: USTEKINUMAB
     Dosage: 90 MILLIGRAM
     Route: 058
     Dates: start: 20170116
  11. USTEKINUMAB [Suspect]
     Active Substance: USTEKINUMAB
     Dosage: 45 MILLIGRAM
     Route: 058
     Dates: start: 20171109
  12. USTEKINUMAB [Suspect]
     Active Substance: USTEKINUMAB
     Indication: PSORIATIC ARTHROPATHY
     Dosage: 45 MILLIGRAM
     Route: 058
     Dates: start: 20150925
  13. USTEKINUMAB [Suspect]
     Active Substance: USTEKINUMAB
     Dosage: 45 MILLIGRAM
     Route: 058
     Dates: start: 20180509
  14. USTEKINUMAB [Suspect]
     Active Substance: USTEKINUMAB
     Dosage: 45 MILLIGRAM
     Route: 058
     Dates: start: 20181025

REACTIONS (4)
  - Radiculopathy [Recovered/Resolved]
  - Off label use [Unknown]
  - Incorrect dose administered [Unknown]
  - Intervertebral disc protrusion [Recovered/Resolved with Sequelae]

NARRATIVE: CASE EVENT DATE: 20160323
